FAERS Safety Report 17535199 (Version 2)
Quarter: 2020Q2

REPORT INFORMATION
  Report Type: Spontaneous
  Country: FR (occurrence: FR)
  Receive Date: 20200312
  Receipt Date: 20200409
  Transmission Date: 20200713
  Serious: No
  Sender: FDA-Public Use
  Company Number: FR-AKCEA THERAPEUTICS-2019IS001509

PATIENT

DRUGS (1)
  1. TEGSEDI [Suspect]
     Active Substance: INOTERSEN SODIUM
     Indication: PRODUCT USED FOR UNKNOWN INDICATION
     Dosage: 284 MG, UNK SOLUTION FOR INJECTION IN PRE-FILLED SYRINGE

REACTIONS (7)
  - Fatigue [Unknown]
  - Gait disturbance [Unknown]
  - Nasopharyngitis [Unknown]
  - Pain in extremity [Unknown]
  - Injection site haematoma [Unknown]
  - Peripheral coldness [Unknown]
  - Pain in extremity [Recovering/Resolving]
